FAERS Safety Report 24795214 (Version 2)
Quarter: 2025Q1

REPORT INFORMATION
  Report Type: Report from Study
  Country: US (occurrence: US)
  Receive Date: 20241231
  Receipt Date: 20250205
  Transmission Date: 20250409
  Serious: Yes (Other)
  Sender: PFIZER
  Company Number: US-PFIZER INC-202400300144

PATIENT
  Age: 74 Year
  Sex: Female

DRUGS (35)
  1. LORBRENA [Suspect]
     Active Substance: LORLATINIB
     Dosage: 100 MG, DAILY
     Route: 048
     Dates: start: 20241105
  2. LORBRENA [Suspect]
     Active Substance: LORLATINIB
     Dosage: (100 MG) TABLET ORALLY ONCE DAILY
     Route: 048
     Dates: start: 20241105
  3. ALBUTEROL SULFATE [Concomitant]
     Active Substance: ALBUTEROL SULFATE
  4. DULOXETINE [Concomitant]
     Active Substance: DULOXETINE
  5. DYMISTA [Concomitant]
     Active Substance: AZELASTINE HYDROCHLORIDE\FLUTICASONE PROPIONATE
  6. FENOFIBRATE [Concomitant]
     Active Substance: FENOFIBRATE
  7. FLUOROMETHOLONE [Concomitant]
     Active Substance: FLUOROMETHOLONE
  8. IPRATROPIUM BROMIDE [Concomitant]
     Active Substance: IPRATROPIUM BROMIDE
  9. MONTELUKAST SODIUM [Concomitant]
     Active Substance: MONTELUKAST SODIUM
  10. OXYCODONE [Concomitant]
     Active Substance: OXYCODONE
  11. PANTOPRAZOLE [Concomitant]
     Active Substance: PANTOPRAZOLE
  12. PEPCID [Concomitant]
     Active Substance: FAMOTIDINE
  13. SUDOGEST [Concomitant]
     Active Substance: PSEUDOEPHEDRINE HYDROCHLORIDE
  14. TOPIRAMATE [Concomitant]
     Active Substance: TOPIRAMATE
  15. WARFARIN [Concomitant]
     Active Substance: WARFARIN
  16. LORAZEPAM [Concomitant]
     Active Substance: LORAZEPAM
  17. ONDANSETRON [Concomitant]
     Active Substance: ONDANSETRON
  18. PROCHLORPERAZINE [Concomitant]
     Active Substance: PROCHLORPERAZINE
  19. DEXAMETHASONE [Concomitant]
     Active Substance: DEXAMETHASONE
  20. ALBUTEROL\IPRATROPIUM [Concomitant]
     Active Substance: ALBUTEROL\IPRATROPIUM
  21. NUCALA [Concomitant]
     Active Substance: MEPOLIZUMAB
     Route: 058
  22. METHYLPREDNISOLONE [Concomitant]
     Active Substance: METHYLPREDNISOLONE
  23. TRAMADOL [Concomitant]
     Active Substance: TRAMADOL
  24. BREZTRI [Concomitant]
     Active Substance: BUDESONIDE\FORMOTEROL\GLYCOPYRROLATE
  25. LOPERAMIDE [Concomitant]
     Active Substance: LOPERAMIDE
  26. AUGMENTIN [Concomitant]
     Active Substance: AMOXICILLIN\CLAVULANATE POTASSIUM
  27. GABAPENTIN [Concomitant]
     Active Substance: GABAPENTIN
  28. LOPERAMIDE HYDROCHLORIDE [Concomitant]
     Active Substance: LOPERAMIDE HYDROCHLORIDE
  29. NITROFURANTOIN [Concomitant]
     Active Substance: NITROFURANTOIN
  30. NITROFURANTOIN MONOHYDRATE MACROCRYSTALS [Concomitant]
     Active Substance: NITROFURANTOIN\NITROFURANTOIN MONOHYDRATE
  31. WARFARIN SODIUM [Concomitant]
     Active Substance: WARFARIN SODIUM
  32. ALBUTEROL SULFATE [Concomitant]
     Active Substance: ALBUTEROL SULFATE
  33. CRESTOR [Concomitant]
     Active Substance: ROSUVASTATIN CALCIUM
  34. FIBER THERAPY (CALCIUM POLYCARBOPHIL) [Concomitant]
     Active Substance: CALCIUM POLYCARBOPHIL
  35. PROPRANOLOL [Concomitant]
     Active Substance: PROPRANOLOL HYDROCHLORIDE

REACTIONS (7)
  - Hallucination [Recovering/Resolving]
  - Fatigue [Not Recovered/Not Resolved]
  - Nausea [Recovering/Resolving]
  - Feeling abnormal [Not Recovered/Not Resolved]
  - Memory impairment [Not Recovered/Not Resolved]
  - Bronchitis [Recovered/Resolved]
  - Thyroid function test abnormal [Unknown]

NARRATIVE: CASE EVENT DATE: 20241204
